FAERS Safety Report 4323159-3 (Version None)
Quarter: 2004Q1

REPORT INFORMATION
  Report Type: 
  Country: None (occurrence: None)
  Receive Date: 20040322
  Receipt Date: 20040310
  Transmission Date: 20041129
  Serious: Yes (Death)
  Sender: FDA-Public Use
  Company Number: MK200403-0105-1

PATIENT
  Age: 21 Year
  Sex: Male

DRUGS (2)
  1. MORPHINE SULFATE [Suspect]
     Dosage: INJ
  2. METHAMPHETAMINE HCL [Suspect]
     Dosage: INJ

REACTIONS (6)
  - BRAIN OEDEMA [None]
  - DRUG INTERACTION [None]
  - HYPERTHERMIA [None]
  - LYMPHADENOPATHY [None]
  - PULMONARY OEDEMA [None]
  - TONSILLITIS [None]
